FAERS Safety Report 17647946 (Version 1)
Quarter: 2020Q2

REPORT INFORMATION
  Report Type: Spontaneous
  Country: US (occurrence: US)
  Receive Date: 20200409
  Receipt Date: 20200409
  Transmission Date: 20200713
  Serious: Yes (Hospitalization, Other)
  Sender: FDA-Public Use
  Company Number: US-AMGEN-USASP2020056960

PATIENT
  Sex: Male

DRUGS (3)
  1. EPOGEN [Suspect]
     Active Substance: ERYTHROPOIETIN
     Dosage: 2800 UNIT, 3 TIMES/WK
     Route: 065
     Dates: start: 202002
  2. EPOGEN [Suspect]
     Active Substance: ERYTHROPOIETIN
     Dosage: 2000 UNIT, 3 TIMES/WK (MONDAY, WEDNESDAY, AND FRIDAY)
     Route: 065
     Dates: end: 202002
  3. EPOGEN [Suspect]
     Active Substance: ERYTHROPOIETIN
     Indication: CHRONIC KIDNEY DISEASE
     Dosage: 250 UNIT, 3 TIMES/WK
     Route: 065
     Dates: start: 201709

REACTIONS (1)
  - Refractory cytopenia with unilineage dysplasia [Not Recovered/Not Resolved]
